FAERS Safety Report 8093042-9 (Version None)
Quarter: 2012Q1

REPORT INFORMATION
  Report Type: 
  Country: None (occurrence: None)
  Receive Date: 20120128
  Receipt Date: 20110914
  Transmission Date: 20120608
  Serious: No
  Sender: FDA-Public Use
  Company Number: PR-ABBOTT-11P-131-0732047-00

PATIENT
  Sex: Female
  Weight: 81.72 kg

DRUGS (4)
  1. REGULAR INSULIN [Concomitant]
     Indication: DIABETES MELLITUS
     Dosage: UNKNOWN
     Route: 058
  2. HUMIRA [Suspect]
     Indication: RHEUMATOID ARTHRITIS
     Dosage: 1 PEN EVERY 15 DAYS
     Route: 058
     Dates: start: 20110612
  3. INSULIN N [Concomitant]
     Indication: DIABETES MELLITUS
     Dosage: UNKNOWN
     Route: 058
  4. VASOTEC [Concomitant]
     Indication: HYPERTENSION
     Dosage: UNKNOWN
     Route: 048

REACTIONS (3)
  - FEELING ABNORMAL [None]
  - PAIN [None]
  - MALAISE [None]
